FAERS Safety Report 10426218 (Version 1)
Quarter: 2014Q3

REPORT INFORMATION
  Report Type: Spontaneous
  Country: US (occurrence: None)
  Receive Date: 20140725
  Receipt Date: 20140725
  Transmission Date: 20150326
  Serious: No
  Sender: FDA-Public Use
  Company Number: AP356-00622-SPO-US

PATIENT
  Age: 72 Year
  Sex: Female
  Weight: 96 kg

DRUGS (4)
  1. VITAMIN D (VITAMIN D NOS) [Concomitant]
  2. BELVIQ [Suspect]
     Active Substance: LORCASERIN HYDROCHLORIDE
     Indication: WEIGHT DECREASED
     Route: 048
     Dates: start: 201401
  3. COLON HEALTH (LACTOBACILLUS ACIDOPHILUS) [Concomitant]
  4. VAGIFEM (ESTRADIOL) [Concomitant]

REACTIONS (2)
  - Faecaloma [None]
  - Constipation [None]

NARRATIVE: CASE EVENT DATE: 201401
